FAERS Safety Report 19465106 (Version 17)
Quarter: 2022Q1

REPORT INFORMATION
  Report Type: Report from Study
  Country: US (occurrence: US)
  Receive Date: 20210627
  Receipt Date: 20220329
  Transmission Date: 20220423
  Serious: Yes (Hospitalization, Other)
  Sender: FDA-Public Use
  Company Number: NVSC2021US138590

PATIENT
  Sex: Female
  Weight: 79.365 kg

DRUGS (13)
  1. TREPROSTINIL [Suspect]
     Active Substance: TREPROSTINIL
     Indication: Pulmonary arterial hypertension
     Dosage: 12 NG/KG/MIN, CONT (STRENGTH 1MG/ML)
     Route: 042
     Dates: start: 20210616
  2. TREPROSTINIL [Suspect]
     Active Substance: TREPROSTINIL
     Dosage: 13 NG/KG/MIN CONT (STRENGTH 1MG/ML)
     Route: 042
  3. TREPROSTINIL [Suspect]
     Active Substance: TREPROSTINIL
     Dosage: 15.3 NG/KG/MIN, CONT (STRENGTH 1MG/ML)
     Route: 042
  4. TREPROSTINIL [Suspect]
     Active Substance: TREPROSTINIL
     Dosage: 16.7 NG/KG/MIN, CONT (STRENGTH 1MG/ML)
     Route: 042
  5. TREPROSTINIL [Suspect]
     Active Substance: TREPROSTINIL
     Dosage: 20 NG/KG/MIN, CONT (STRENGTH 1MG/ML)
     Route: 042
  6. TREPROSTINIL [Suspect]
     Active Substance: TREPROSTINIL
     Dosage: UNK (STRENGTH 1MG/ML)
     Route: 065
  7. TREPROSTINIL [Suspect]
     Active Substance: TREPROSTINIL
     Dosage: 32 NG/KG/MIN, CONT (STRENGTH 1MG/ML)
     Route: 042
  8. TREPROSTINIL [Suspect]
     Active Substance: TREPROSTINIL
     Dosage: 46 NG/KG/MIN, CONT (STRENGTH 5MG/ML)
     Route: 042
     Dates: start: 20210616
  9. CHLORAPREP [Suspect]
     Active Substance: CHLORHEXIDINE GLUCONATE\ISOPROPYL ALCOHOL
     Indication: Product used for unknown indication
     Dosage: UNK
     Route: 065
  10. ADEMPAS [Suspect]
     Active Substance: RIOCIGUAT
     Indication: Product used for unknown indication
     Dosage: 0.5 MG, TID
     Route: 065
  11. ADEMPAS [Suspect]
     Active Substance: RIOCIGUAT
     Dosage: 2.0 MG, TID
     Route: 065
  12. ADEMPAS [Suspect]
     Active Substance: RIOCIGUAT
     Dosage: 1.0 MG, TID
     Route: 065
  13. OPSUMIT [Concomitant]
     Active Substance: MACITENTAN
     Indication: Product used for unknown indication
     Dosage: UNK
     Route: 065

REACTIONS (37)
  - Pollakiuria [Unknown]
  - Heart rate increased [Unknown]
  - Dyspepsia [Unknown]
  - Asthenia [Unknown]
  - Headache [Unknown]
  - Pneumonia [Unknown]
  - Blindness [Unknown]
  - Chemical burn of skin [Unknown]
  - Dizziness [Not Recovered/Not Resolved]
  - Sneezing [Unknown]
  - Rhinorrhoea [Unknown]
  - Fluid retention [Recovering/Resolving]
  - Joint swelling [Unknown]
  - Peripheral swelling [Unknown]
  - Hypersensitivity [Unknown]
  - Diarrhoea [Unknown]
  - Abdominal distension [Unknown]
  - Allergic cough [Unknown]
  - Gastrooesophageal reflux disease [Unknown]
  - Arthralgia [Unknown]
  - Gait disturbance [Unknown]
  - Vision blurred [Unknown]
  - Decreased appetite [Unknown]
  - Weight decreased [Unknown]
  - Drug intolerance [Unknown]
  - Nasal congestion [Unknown]
  - Dyspnoea exertional [Recovering/Resolving]
  - Hypotension [Recovering/Resolving]
  - Fatigue [Unknown]
  - Dyspnoea [Not Recovered/Not Resolved]
  - Oedema peripheral [Unknown]
  - Catheter site erythema [Unknown]
  - Catheter site pruritus [Unknown]
  - Infusion site irritation [Unknown]
  - Infusion site erythema [Unknown]
  - Infusion site pruritus [Unknown]
  - Infusion site pain [Unknown]
